FAERS Safety Report 24280904 (Version 1)
Quarter: 2024Q3

REPORT INFORMATION
  Report Type: Spontaneous
  Country: GB (occurrence: GB)
  Receive Date: 20240904
  Receipt Date: 20240904
  Transmission Date: 20241017
  Serious: Yes (Other)
  Sender: ALKEM
  Company Number: GB-ALKEM LABORATORIES LIMITED-GB-ALKEM-2024-20211

PATIENT
  Age: 4 Year
  Sex: Female

DRUGS (1)
  1. CLOBAZAM [Suspect]
     Active Substance: CLOBAZAM
     Indication: Partial seizures
     Dosage: 7.5 MILLIGRAM, TID
     Route: 065

REACTIONS (3)
  - Coma [Recovered/Resolved]
  - Necrosis [Recovered/Resolved]
  - Blister [Recovered/Resolved]
